FAERS Safety Report 8904409 (Version 1)
Quarter: 2012Q4

REPORT INFORMATION
  Report Type: 
  Country: ES (occurrence: ES)
  Receive Date: 20121112
  Receipt Date: 20121112
  Transmission Date: 20130627
  Serious: Yes (Hospitalization)
  Sender: FDA-Public Use
  Company Number: ES-BAYER-2012-117260

PATIENT
  Age: 85 Year
  Sex: Female

DRUGS (1)
  1. ADIRO [Suspect]
     Indication: ATRIAL FIBRILLATION
     Dosage: 100 mg, QD
     Dates: end: 20120831

REACTIONS (3)
  - Basal ganglia haemorrhage [Recovering/Resolving]
  - Aphasia [Recovering/Resolving]
  - Hemiplegia [Recovering/Resolving]
